FAERS Safety Report 4395760-2 (Version None)
Quarter: 2004Q3

REPORT INFORMATION
  Report Type: 
  Country: None (occurrence: None)
  Receive Date: 20040709
  Receipt Date: 20040624
  Transmission Date: 20050211
  Serious: Yes (Disabling)
  Sender: FDA-Public Use
  Company Number: MPS1-10246

PATIENT
  Age: 5 Year
  Sex: Female
  Weight: 15.8 kg

DRUGS (6)
  1. ALDURAZYME [Suspect]
     Indication: MUCOPOLYSACCHARIDOSIS IH
     Dosage: 0.55 MG/KG QWK IV
     Route: 042
     Dates: start: 20030516
  2. FLOVENT [Concomitant]
  3. FLONASE [Concomitant]
  4. SINGULAIR [Concomitant]
  5. PREVACID [Concomitant]
  6. MIRALAX [Concomitant]

REACTIONS (6)
  - ABASIA [None]
  - BALANCE DISORDER [None]
  - DECREASED INTEREST [None]
  - DIFFICULTY IN WALKING [None]
  - DISTURBANCE IN ATTENTION [None]
  - GRIP STRENGTH DECREASED [None]
